FAERS Safety Report 12117662 (Version 2)
Quarter: 2016Q1

REPORT INFORMATION
  Report Type: Spontaneous
  Country: US (occurrence: US)
  Receive Date: 20160226
  Receipt Date: 20160323
  Transmission Date: 20160526
  Serious: Yes (Hospitalization)
  Sender: FDA-Public Use
  Company Number: US-009507513-1602USA008250

PATIENT

DRUGS (2)
  1. INTEGRILIN [Suspect]
     Active Substance: EPTIFIBATIDE
     Indication: ANTICOAGULANT THERAPY
  2. HEPARIN [Suspect]
     Active Substance: HEPARIN SODIUM
     Indication: ANTICOAGULANT THERAPY

REACTIONS (1)
  - Treatment failure [Unknown]
